FAERS Safety Report 12513397 (Version 1)
Quarter: 2016Q2

REPORT INFORMATION
  Report Type: Spontaneous
  Country: US (occurrence: None)
  Receive Date: 20160629
  Receipt Date: 20160629
  Transmission Date: 20160815
  Serious: Yes (Life-Threatening)
  Sender: FDA-Public Use
  Company Number: None

PATIENT
  Age: 72 Year
  Sex: Male
  Weight: 44 kg

DRUGS (17)
  1. ASPIRIN. [Concomitant]
     Active Substance: ASPIRIN
  2. NYSTATIN. [Concomitant]
     Active Substance: NYSTATIN
  3. VITAMIN B12 [Concomitant]
     Active Substance: CYANOCOBALAMIN
  4. IRON SULFATE [Concomitant]
     Active Substance: FERROUS SULFATE ANHYDROUS
  5. SENNA [Concomitant]
     Active Substance: SENNA LEAF\SENNOSIDES\SENNOSIDES A AND B
  6. FLECTOR [Concomitant]
     Active Substance: DICLOFENAC EPOLAMINE
  7. GENTAMICIN. [Concomitant]
     Active Substance: GENTAMICIN
  8. FOLIC ACID. [Concomitant]
     Active Substance: FOLIC ACID
  9. LIDOCAINE PATCH [Concomitant]
     Active Substance: LIDOCAINE
  10. MEGACE [Concomitant]
     Active Substance: MEGESTROL ACETATE
  11. FLOMAX [Suspect]
     Active Substance: TAMSULOSIN HYDROCHLORIDE
     Indication: BENIGN PROSTATIC HYPERPLASIA
     Dosage: PRIOR TROADMISSION UNTIL 5/28/2015
     Dates: end: 20150528
  12. LOVENOX [Concomitant]
     Active Substance: ENOXAPARIN SODIUM
  13. LACTOBACILLUS [Concomitant]
     Active Substance: LACTOBACILLUS ACIDOPHILUS
  14. MAGIC MOUTHWASH [Concomitant]
     Active Substance: DIPHENHYDRAMINE HYDROCHLORIDE\LIDOCAINE HYDROCHLORIDE\NYSTATIN
  15. TEFLARO [Concomitant]
     Active Substance: CEFTAROLINE FOSAMIL
  16. ZOFRAN [Concomitant]
     Active Substance: ONDANSETRON HYDROCHLORIDE
  17. VITAMIN D [Concomitant]
     Active Substance: CHOLECALCIFEROL

REACTIONS (3)
  - Dysphagia [None]
  - Toxic epidermal necrolysis [None]
  - Rash generalised [None]

NARRATIVE: CASE EVENT DATE: 20150511
